FAERS Safety Report 20785459 (Version 1)
Quarter: 2022Q2

REPORT INFORMATION
  Report Type: Spontaneous
  Country: JP (occurrence: JP)
  Receive Date: 20220504
  Receipt Date: 20220504
  Transmission Date: 20220721
  Serious: Yes (Other)
  Sender: FDA-Public Use
  Company Number: JP-PFIZER INC-202200607349

PATIENT
  Age: 7 Decade
  Sex: Female

DRUGS (1)
  1. XALKORI [Suspect]
     Active Substance: CRIZOTINIB
     Indication: Lung neoplasm malignant
     Dosage: 250 MG, 2X/DAY
     Dates: start: 202203, end: 202204

REACTIONS (4)
  - Liver disorder [Unknown]
  - Alanine aminotransferase increased [Unknown]
  - Hepatic function abnormal [Unknown]
  - Taste disorder [Unknown]

NARRATIVE: CASE EVENT DATE: 20220101
